FAERS Safety Report 15471018 (Version 2)
Quarter: 2019Q1

REPORT INFORMATION
  Report Type: Report from Study
  Country: DE (occurrence: DE)
  Receive Date: 20181006
  Receipt Date: 20190322
  Transmission Date: 20190417
  Serious: Yes (Hospitalization)
  Sender: FDA-Public Use
  Company Number: DE-AMGEN-DEUNI2018136269

PATIENT
  Age: 78 Year
  Sex: Male
  Weight: 65 kg

DRUGS (31)
  1. FOLINIC ACID [Suspect]
     Active Substance: LEUCOVORIN
     Dosage: 695 MILLIGRAM
     Route: 065
     Dates: start: 20181009
  2. FLUOROURACIL. [Suspect]
     Active Substance: FLUOROURACIL
     Dosage: 4173 MILLIGRAM
     Route: 040
     Dates: start: 20180612
  3. FOLINIC ACID [Suspect]
     Active Substance: LEUCOVORIN
     Dosage: 713 MILLIGRAM
     Route: 065
     Dates: start: 20181023
  4. FLUOROURACIL. [Suspect]
     Active Substance: FLUOROURACIL
     Dosage: 695 MILLIGRAM
     Route: 042
     Dates: start: 20180612
  5. FLUOROURACIL. [Suspect]
     Active Substance: FLUOROURACIL
     Dosage: 695 MILLIGRAM
     Route: 040
     Dates: start: 20180717
  6. MOVICOL [Concomitant]
     Active Substance: POLYETHYLENE GLYCOL 3350\POTASSIUM CHLORIDE\SODIUM BICARBONATE\SODIUM CHLORIDE
     Indication: CONSTIPATION
     Dosage: 999 UNK, QD
     Route: 048
     Dates: start: 20180504
  7. FLUOROURACIL. [Suspect]
     Active Substance: FLUOROURACIL
     Dosage: 4173 MILLIGRAM
     Route: 042
     Dates: start: 20180717
  8. FLUOROURACIL. [Suspect]
     Active Substance: FLUOROURACIL
     Dosage: 695 MILLIGRAM
     Route: 040
     Dates: start: 20181009
  9. ASPIRIN. [Concomitant]
     Active Substance: ASPIRIN
     Indication: PAIN
     Dosage: 100 MILLIGRAM, QD
     Route: 048
     Dates: start: 20180504
  10. ASPIRIN. [Concomitant]
     Active Substance: ASPIRIN
     Indication: SYNCOPE
  11. CERTOPARIN SODIUM [Concomitant]
     Active Substance: CERTOPARIN SODIUM
     Indication: PROPHYLAXIS
     Dosage: 3000 INTERNATIONAL UNIT, QD
     Route: 048
     Dates: start: 20180504
  12. PANITUMUMAB [Suspect]
     Active Substance: PANITUMUMAB
     Dosage: 414 MILLIGRAM
     Route: 042
     Dates: start: 20181023
  13. FOLINIC ACID [Suspect]
     Active Substance: LEUCOVORIN
     Indication: COLORECTAL CANCER METASTATIC
     Dosage: 695 MILLIGRAM
     Route: 065
     Dates: start: 20180529
  14. IRINOTECAN [Suspect]
     Active Substance: IRINOTECAN
     Dosage: 313 MILLIGRAM
     Route: 065
     Dates: start: 20181009
  15. METAMIZOL [Concomitant]
     Active Substance: METAMIZOLE SODIUM
     Indication: PAIN
     Dosage: 500 MILLIGRAM, QD
     Route: 048
     Dates: start: 20180504
  16. FOLINIC ACID [Suspect]
     Active Substance: LEUCOVORIN
     Dosage: 400 MILLIGRAM
     Route: 065
     Dates: start: 20180925
  17. FLUOROURACIL. [Suspect]
     Active Substance: FLUOROURACIL
     Indication: COLORECTAL CANCER METASTATIC
     Dosage: 695 MILLIGRAM
     Route: 040
     Dates: start: 20180529
  18. PANTOPRAZOL [Concomitant]
     Active Substance: PANTOPRAZOLE SODIUM
     Indication: PROPHYLAXIS
     Dosage: 20 MILLIGRAM, QD
     Route: 048
     Dates: start: 20180504
  19. DOXYCYCLINE. [Concomitant]
     Active Substance: DOXYCYCLINE
     Indication: PROPHYLAXIS
     Dosage: 100 MILLIGRAM, QD
     Route: 048
     Dates: start: 20180529, end: 20181120
  20. PANITUMUMAB [Suspect]
     Active Substance: PANITUMUMAB
     Indication: COLORECTAL CANCER METASTATIC
     Dosage: 390 MILLIGRAM
     Route: 042
     Dates: start: 20180529
  21. FLUOROURACIL. [Suspect]
     Active Substance: FLUOROURACIL
     Dosage: 4173 MILLIGRAM
     Route: 042
     Dates: start: 20180529
  22. FLUOROURACIL. [Suspect]
     Active Substance: FLUOROURACIL
     Dosage: 4280 MILLIGRAM
     Route: 042
     Dates: start: 20181023
  23. ALOXI [Concomitant]
     Active Substance: PALONOSETRON HYDROCHLORIDE
     Indication: PROPHYLAXIS
     Dosage: 250 MH, AS NECESSARY
     Route: 042
     Dates: start: 20180529, end: 20181120
  24. DEXTROMETHORPHAN [Concomitant]
     Active Substance: DEXTROMETHORPHAN
     Indication: PROPHYLAXIS
     Dosage: 4-8 MILLIGRAM
     Dates: start: 20180529, end: 20181120
  25. FLUOROURACIL. [Suspect]
     Active Substance: FLUOROURACIL
     Dosage: 4173 MILLIGRAM
     Route: 042
     Dates: start: 20181009
  26. IRINOTECAN [Suspect]
     Active Substance: IRINOTECAN
     Indication: COLORECTAL CANCER METASTATIC
     Dosage: 313 MILLIGRAM
     Route: 065
     Dates: start: 20180529
  27. IRINOTECAN [Suspect]
     Active Substance: IRINOTECAN
     Dosage: 180 MG, UNK
     Route: 065
     Dates: start: 20180925
  28. IRINOTECAN [Suspect]
     Active Substance: IRINOTECAN
     Dosage: 321 MILLIGRAM
     Route: 065
     Dates: start: 20181023
  29. FLUOROURACIL. [Suspect]
     Active Substance: FLUOROURACIL
     Dosage: 400 MILLIGRAM
     Route: 040
     Dates: start: 20180925
  30. FLUOROURACIL. [Suspect]
     Active Substance: FLUOROURACIL
     Dosage: 2400 MILLIGRAM
     Route: 042
     Dates: start: 20180925
  31. FLUOROURACIL. [Suspect]
     Active Substance: FLUOROURACIL
     Dosage: 713 MILLIGRAM
     Route: 040
     Dates: start: 20181023

REACTIONS (2)
  - Syncope [Recovered/Resolved]
  - Skin fissures [Not Recovered/Not Resolved]

NARRATIVE: CASE EVENT DATE: 20180827
